FAERS Safety Report 20200041 (Version 1)
Quarter: 2021Q4

REPORT INFORMATION
  Report Type: Spontaneous
  Country: US (occurrence: None)
  Receive Date: 20211217
  Receipt Date: 20211217
  Transmission Date: 20220303
  Serious: No
  Sender: FDA-Public Use
  Company Number: None

PATIENT
  Age: 64 Year
  Sex: Female
  Weight: 72.57 kg

DRUGS (1)
  1. XELJANZ XR [Suspect]
     Active Substance: TOFACITINIB CITRATE
     Indication: Rheumatoid arthritis
     Dosage: OTHER QUANTITY : TAKE 1 TABLET ;?FREQUENCY : DAILY;?
     Route: 048
     Dates: start: 202012

REACTIONS (2)
  - Illness [None]
  - Sinusitis [None]
